FAERS Safety Report 5229302-6 (Version None)
Quarter: 2007Q1

REPORT INFORMATION
  Report Type: 
  Country: None (occurrence: None)
  Receive Date: 20061201
  Receipt Date: 20060901
  Transmission Date: 20070707
  Serious: No
  Sender: FDA-Public Use
  Company Number: US200609000678

PATIENT
  Age: 45 Year
  Sex: Female

DRUGS (4)
  1. CYMBALTA [Suspect]
     Indication: PAIN
     Dosage: 30 MG ;60 MG, 2/D
     Dates: start: 20060630, end: 20060801
  2. CYMBALTA [Suspect]
     Indication: PAIN
     Dosage: 30 MG ;60 MG, 2/D
     Dates: start: 20060630
  3. XANAX /USA/ (ALPRAZOLAM) [Concomitant]
  4. OTHER ANTIHYPERTENSIVES [Concomitant]

REACTIONS (2)
  - DYSPHEMIA [None]
  - TREMOR [None]
